FAERS Safety Report 23560741 (Version 1)
Quarter: 2024Q1

REPORT INFORMATION
  Report Type: Spontaneous
  Country: RU (occurrence: RU)
  Receive Date: 20240223
  Receipt Date: 20240223
  Transmission Date: 20240410
  Serious: Yes (Hospitalization)
  Sender: FDA-Public Use
  Company Number: RU-B.Braun Medical Inc.-2153622

PATIENT
  Age: 61 Year
  Sex: Male
  Weight: 115 kg

DRUGS (4)
  1. SODIUM CHLORIDE [Suspect]
     Active Substance: SODIUM CHLORIDE
     Route: 042
  2. THIOCTIC ACID [Suspect]
     Active Substance: THIOCTIC ACID
  3. PREGABALIN [Concomitant]
     Active Substance: PREGABALIN
  4. Ipidacrin [Concomitant]

REACTIONS (2)
  - Pruritus [Recovering/Resolving]
  - Rash [Recovering/Resolving]
